FAERS Safety Report 22590468 (Version 1)
Quarter: 2023Q2

REPORT INFORMATION
  Report Type: Spontaneous
  Country: CN (occurrence: CN)
  Receive Date: 20230612
  Receipt Date: 20230612
  Transmission Date: 20230721
  Serious: Yes (Other)
  Sender: FDA-Public Use
  Company Number: CN-ELI_LILLY_AND_COMPANY-CN202306001338

PATIENT
  Sex: Female

DRUGS (1)
  1. ABEMACICLIB [Suspect]
     Active Substance: ABEMACICLIB
     Indication: HER2 negative breast cancer
     Dosage: 150 MG, BID
     Route: 048
     Dates: start: 20230428

REACTIONS (2)
  - Acute lung injury [Not Recovered/Not Resolved]
  - Pleural effusion [Not Recovered/Not Resolved]
